FAERS Safety Report 15732658 (Version 2)
Quarter: 2018Q4

REPORT INFORMATION
  Report Type: Spontaneous
  Country: FR (occurrence: FR)
  Receive Date: 20181217
  Receipt Date: 20181217
  Transmission Date: 20190205
  Serious: Yes (Hospitalization, Other)
  Sender: FDA-Public Use
  Company Number: PHHY2018FR051767

PATIENT
  Age: 67 Year
  Sex: Female

DRUGS (18)
  1. ETOPOSIDE. [Suspect]
     Active Substance: ETOPOSIDE
     Indication: NON-HODGKIN^S LYMPHOMA STAGE IV
     Dosage: 200 MG/M2, BID (FROM D-6 TO D-3)
     Route: 065
  2. MELPHALAN. [Suspect]
     Active Substance: MELPHALAN
     Indication: BONE MARROW CONDITIONING REGIMEN
  3. DEXAMETHASONE. [Suspect]
     Active Substance: DEXAMETHASONE
     Indication: NON-HODGKIN^S LYMPHOMA STAGE IV
     Dosage: 40 MG,UNK
     Route: 065
  4. CYTARABINE. [Suspect]
     Active Substance: CYTARABINE
     Indication: NON-HODGKIN^S LYMPHOMA
     Dosage: 2 MG/M2, BID
     Route: 065
  5. CYTARABINE. [Suspect]
     Active Substance: CYTARABINE
     Dosage: 1 G/M2, UNK
     Route: 065
  6. ARACYTINE [Suspect]
     Active Substance: CYTARABINE
     Indication: B-CELL LYMPHOMA
  7. MOZOBIL [Concomitant]
     Active Substance: PLERIXAFOR
     Indication: PREMEDICATION
     Dosage: UNK
     Route: 065
  8. RITUXIMAB. [Suspect]
     Active Substance: RITUXIMAB
     Indication: NON-HODGKIN^S LYMPHOMA STAGE IV
     Dosage: 375 MG/M2,UNK
     Route: 065
  9. BENDAMUSTINE [Suspect]
     Active Substance: BENDAMUSTINE
     Indication: B-CELL LYMPHOMA
  10. GRANULOCYTE COLONY STIMULATING FACTOR [Concomitant]
     Active Substance: GRANULOCYTE COLONY-STIMULATING FACTOR NOS
     Indication: PREMEDICATION
     Dosage: UNK
     Route: 065
  11. ETOPOSIDE. [Suspect]
     Active Substance: ETOPOSIDE
     Indication: BONE MARROW CONDITIONING REGIMEN
  12. BENDAMUSTINE [Suspect]
     Active Substance: BENDAMUSTINE
     Indication: BONE MARROW CONDITIONING REGIMEN
  13. MELPHALAN. [Suspect]
     Active Substance: MELPHALAN
     Indication: NON-HODGKIN^S LYMPHOMA STAGE IV
     Dosage: 140 MG/M2, AT D-2
     Route: 065
  14. OXALIPLATIN. [Suspect]
     Active Substance: OXALIPLATIN
     Indication: NON-HODGKIN^S LYMPHOMA STAGE IV
     Dosage: 130 MG/M2, UNK
     Route: 065
  15. ARACYTINE [Suspect]
     Active Substance: CYTARABINE
     Indication: BONE MARROW CONDITIONING REGIMEN
  16. BENDAMUSTINE [Suspect]
     Active Substance: BENDAMUSTINE
     Indication: NON-HODGKIN^S LYMPHOMA STAGE IV
     Dosage: 200 MG/M2, AT D-6 AND D-7
     Route: 065
  17. MOZOBIL [Concomitant]
     Active Substance: PLERIXAFOR
     Indication: HAEMATOPOIETIC STEM CELL MOBILISATION
  18. ARACYTINE [Suspect]
     Active Substance: CYTARABINE
     Indication: NON-HODGKIN^S LYMPHOMA STAGE IV
     Dosage: UNK Q12H (FROM D-6 AND D-7)
     Route: 065

REACTIONS (12)
  - Ascites [Recovered/Resolved]
  - Vomiting [Unknown]
  - Nephropathy toxic [Recovering/Resolving]
  - Off label use [Unknown]
  - Dehydration [Unknown]
  - Product use in unapproved indication [Unknown]
  - Aplasia [Recovered/Resolved]
  - Thrombocytopenia [Recovered/Resolved]
  - Acute kidney injury [Recovering/Resolving]
  - Diarrhoea [Unknown]
  - Venoocclusive liver disease [Recovered/Resolved]
  - Toxicity to various agents [Recovered/Resolved]
